FAERS Safety Report 7650861-8 (Version None)
Quarter: 2011Q3

REPORT INFORMATION
  Report Type: 
  Country: None (occurrence: None)
  Receive Date: 20110802
  Receipt Date: 20110727
  Transmission Date: 20111222
  Serious: Yes (Hospitalization, Other)
  Sender: FDA-Public Use
  Company Number: GB-PFIZER INC-2006088154

PATIENT
  Age: 72 Year
  Sex: Male
  Weight: 88 kg

DRUGS (8)
  1. HYDROCORTISONE [Suspect]
     Indication: CARDIAC DISORDER
  2. HYDROCORTISONE [Suspect]
     Indication: TUBERCULOSIS
     Route: 048
     Dates: start: 19760701
  3. CLOPIDOGREL BISULFATE [Concomitant]
     Dates: start: 20030301
  4. HYDROCORTISONE [Suspect]
     Indication: ADRENAL DISORDER
  5. LIPITOR [Concomitant]
     Dates: start: 20030301
  6. ASPIRIN [Concomitant]
     Dates: start: 20030301
  7. FLUDROCORTISONE ACETATE [Concomitant]
     Dates: start: 19760701
  8. RAMIPRIL [Concomitant]

REACTIONS (5)
  - FOOD POISONING [None]
  - BLOOD GLUCOSE INCREASED [None]
  - MALAISE [None]
  - HYPERGLYCAEMIA [None]
  - PYREXIA [None]
